FAERS Safety Report 6947877-3 (Version None)
Quarter: 2010Q3

REPORT INFORMATION
  Report Type: 
  Country: None (occurrence: None)
  Receive Date: 20100828
  Receipt Date: 20091008
  Transmission Date: 20110219
  Serious: No
  Sender: FDA-Public Use
  Company Number: US-ABBOTT-09P-163-0601480-00

PATIENT
  Sex: Female
  Weight: 86.26 kg

DRUGS (6)
  1. NIASPAN [Suspect]
     Indication: BLOOD CHOLESTEROL INCREASED
     Dates: start: 20090715, end: 20090927
  2. CHOLESTYRAMINE [Concomitant]
     Indication: HYPERTENSION
     Dates: start: 20091002
  3. DIOVAN [Concomitant]
     Indication: HYPERTENSION
  4. CARVEDILOL [Concomitant]
     Indication: HEART RATE IRREGULAR
  5. OMEPRAZOLE [Concomitant]
     Indication: DYSPEPSIA
  6. VITAMINS [Concomitant]
     Indication: PRODUCT USED FOR UNKNOWN INDICATION

REACTIONS (1)
  - DRY MOUTH [None]
